FAERS Safety Report 9240384 (Version 2)
Quarter: 2013Q2

REPORT INFORMATION
  Report Type: Spontaneous
  Country: US (occurrence: None)
  Receive Date: 20130417
  Receipt Date: 20130423
  Transmission Date: 20140414
  Serious: Yes (Hospitalization)
  Sender: FDA-Public Use
  Company Number: JPI-P-031032

PATIENT
  Age: 30 Year
  Sex: Female
  Weight: 106.14 kg

DRUGS (2)
  1. XYREM [Suspect]
     Indication: CATAPLEXY
     Dosage: 4.5 GM (2.25 GM, 2 IN 1 D), ORAL
     Route: 048
     Dates: start: 20120727
  2. BIRTH CONTROL [Concomitant]

REACTIONS (5)
  - Cholelithiasis [None]
  - Procedural pain [None]
  - Adverse event [None]
  - Drug dose omission [None]
  - Drug interaction [None]
